FAERS Safety Report 7345685-5 (Version None)
Quarter: 2011Q1

REPORT INFORMATION
  Report Type: 
  Country: None (occurrence: None)
  Receive Date: 20110310
  Receipt Date: 20110304
  Transmission Date: 20110831
  Serious: Yes (Other)
  Sender: FDA-Public Use
  Company Number: B0704392A

PATIENT
  Sex: Male

DRUGS (1)
  1. AVOLVE [Suspect]
     Route: 048

REACTIONS (2)
  - DELIRIUM [None]
  - GYNAECOMASTIA [None]
